FAERS Safety Report 13258757 (Version 1)
Quarter: 2017Q1

REPORT INFORMATION
  Report Type: Other
  Country: US (occurrence: US)
  Receive Date: 20170222
  Receipt Date: 20170222
  Transmission Date: 20170428
  Serious: Yes (Death, Other)
  Sender: FDA-Public Use
  Company Number: US-ACTELION-A-CH2017-149824

PATIENT
  Age: 6 Year
  Sex: Female

DRUGS (4)
  1. MILRINONE [Concomitant]
     Active Substance: MILRINONE
  2. NITRIC OXIDE. [Concomitant]
     Active Substance: NITRIC OXIDE
     Route: 055
  3. EPINEPHRINE. [Concomitant]
     Active Substance: EPINEPHRINE
  4. EPOPROSTENOL SODIUM. [Suspect]
     Active Substance: EPOPROSTENOL SODIUM
     Indication: PULMONARY HYPERTENSION
     Route: 042

REACTIONS (2)
  - Death [Fatal]
  - Pulmonary oedema [Unknown]
